FAERS Safety Report 10721809 (Version 5)
Quarter: 2015Q1

REPORT INFORMATION
  Report Type: Report from Study
  Country: BE (occurrence: BE)
  Receive Date: 20150119
  Receipt Date: 20150327
  Transmission Date: 20150721
  Serious: Yes (Death, Hospitalization)
  Sender: FDA-Public Use
  Company Number: BE-ABBVIE-13P-013-1054385-00

PATIENT
  Age: 89 Year
  Sex: Female

DRUGS (12)
  1. DUODOPA [Suspect]
     Active Substance: CARBIDOPA\LEVODOPA
     Dosage: AM = 4 ML, CD = 1.3 ML/H DURING 16H, ED = 0 ML
     Route: 050
     Dates: start: 20141120, end: 20150106
  2. PROLOPA [Concomitant]
     Active Substance: BENSERAZIDE\LEVODOPA
     Indication: PARKINSON^S DISEASE
     Dosage: EMERGENCY MEDICATION: 0.5 TABLET AT 7AM, 10AM, 1:30PM, 5PM AND 9PM
     Dates: start: 20130218, end: 20130402
  3. DUODOPA [Suspect]
     Active Substance: CARBIDOPA\LEVODOPA
     Dosage: AM DOSE: 6ML, CONTIN DOSE: 1.6ML/H DURING 16 HRS, EXTRA DOSE: 0.8ML
     Route: 065
     Dates: start: 20130218, end: 20130402
  4. DUODOPA [Suspect]
     Active Substance: CARBIDOPA\LEVODOPA
     Dosage: AM DOSE: 6ML; CONTIN DOSE: 1.6ML/H DURING 16HRS; EXTRA DOSE:0.8ML
     Route: 050
     Dates: start: 20130402, end: 20140502
  5. DUODOPA [Suspect]
     Active Substance: CARBIDOPA\LEVODOPA
     Dosage: AM DOSE= 4ML, CONTIN DOSE= 1.2ML/H DURING 16HRS, EXTRA DOSE=0ML
     Route: 050
     Dates: start: 20150106, end: 20150109
  6. DUODOPA [Suspect]
     Active Substance: CARBIDOPA\LEVODOPA
     Indication: PARKINSON^S DISEASE
     Dosage: AM DOSE: 6ML, CONTIN DOSE: 2.1ML/H DURING 16 HRS, EXTRA DOSE: 0.8ML
     Route: 050
     Dates: start: 20101025, end: 20130218
  7. DUODOPA [Suspect]
     Active Substance: CARBIDOPA\LEVODOPA
     Dosage: MD: 6ML, CD: 1.8ML/H DURING 16HRS, ED: 0 ML
     Route: 050
     Dates: start: 20140502, end: 20141031
  8. DUODOPA [Suspect]
     Active Substance: CARBIDOPA\LEVODOPA
     Dosage: MD:6ML, CD: 1.6ML/H DURING 16HRS, ED: 0ML
     Route: 050
     Dates: start: 20141031, end: 20141104
  9. DUODOPA [Suspect]
     Active Substance: CARBIDOPA\LEVODOPA
     Dosage: MD: 4ML, CD: 1.6ML/H FOR 16 HRS; ED: 0ML
     Route: 050
     Dates: start: 20141104, end: 20141110
  10. DUODOPA [Suspect]
     Active Substance: CARBIDOPA\LEVODOPA
     Dosage: AM: 4ML; CD: 1.2ML/H FOR 16HRS, EXTRA DOSE= 0ML
     Route: 050
     Dates: start: 20150109, end: 20150114
  11. DUODOPA [Suspect]
     Active Substance: CARBIDOPA\LEVODOPA
     Dosage: AM 4ML, CD 1.2ML/H DURING 16 H, ED 0ML
     Route: 050
     Dates: start: 20150114
  12. DUODOPA [Suspect]
     Active Substance: CARBIDOPA\LEVODOPA
     Dosage: AM = 4 ML, CD = 1.4 ML/H DURING 16H, ED = 0 ML
     Route: 050
     Dates: start: 20141110, end: 20141120

REACTIONS (8)
  - Gallbladder disorder [Unknown]
  - Incorrect route of drug administration [Recovered/Resolved]
  - Death [Fatal]
  - Confusional state [Recovering/Resolving]
  - Dyskinesia [Recovered/Resolved]
  - Hallucination [Unknown]
  - Unintentional medical device removal [Unknown]
  - Dyskinesia [Unknown]

NARRATIVE: CASE EVENT DATE: 20150109
